FAERS Safety Report 8593932-4 (Version None)
Quarter: 2012Q3

REPORT INFORMATION
  Report Type: 
  Country: None (occurrence: None)
  Receive Date: 20120814
  Receipt Date: 20120809
  Transmission Date: 20120928
  Serious: Yes (Other)
  Sender: FDA-Public Use
  Company Number: US-CELGENEUS-163-21880-12081157

PATIENT
  Sex: Female

DRUGS (3)
  1. REVLIMID [Suspect]
     Dosage: 5 MILLIGRAM
     Route: 048
     Dates: start: 20120705
  2. MS CONTIN [Concomitant]
     Route: 065
  3. MEGESTROL ACETATE [Concomitant]
     Route: 048

REACTIONS (1)
  - GASTRIC DISORDER [None]
